FAERS Safety Report 8927931 (Version 1)
Quarter: 2012Q4

REPORT INFORMATION
  Report Type: Spontaneous
  Country: US (occurrence: None)
  Receive Date: 20121126
  Receipt Date: 20121126
  Transmission Date: 20130627
  Serious: Yes (Hospitalization)
  Sender: FDA-Public Use
  Company Number: None

PATIENT
  Age: 60 Year
  Sex: Male
  Weight: 78.2 kg

DRUGS (1)
  1. INSULIN [Suspect]
     Indication: IDDM
     Dosage: 16 units every day sq
     Route: 058
     Dates: start: 20061005, end: 20121113

REACTIONS (3)
  - Mental status changes [None]
  - Hypoglycaemia [None]
  - Hyperhidrosis [None]
